FAERS Safety Report 4377763-7 (Version None)
Quarter: 2004Q2

REPORT INFORMATION
  Report Type: 
  Country: None (occurrence: None)
  Receive Date: 20040614
  Receipt Date: 20040614
  Transmission Date: 20050107
  Serious: No
  Sender: FDA-Public Use
  Company Number: None

PATIENT
  Age: 47 Year
  Sex: Female

DRUGS (2)
  1. PAMIDRONATE DISODIUM [Suspect]
  2. ZOLEDRONIC ACID [Suspect]

REACTIONS (3)
  - ASEPTIC NECROSIS BONE [None]
  - PAIN IN JAW [None]
  - TOOTHACHE [None]
